FAERS Safety Report 4913261-7 (Version None)
Quarter: 2006Q1

REPORT INFORMATION
  Report Type: 
  Country: None (occurrence: None)
  Receive Date: 20060210
  Receipt Date: 20060126
  Transmission Date: 20060701
  Serious: Yes (Life-Threatening)
  Sender: FDA-Public Use
  Company Number: 96/00432-GBD

PATIENT
  Age: 32 Year
  Sex: Female
  Weight: 55 kg

DRUGS (3)
  1. BETASERON [Suspect]
     Indication: MULTIPLE SCLEROSIS
     Dosage: 8 MIU, 1 DOSE, SUBCUTANEOUS
     Route: 058
     Dates: start: 19951110, end: 19951201
  2. BETASERON [Suspect]
     Indication: MULTIPLE SCLEROSIS
     Dosage: 8 MIU, 1 DOSE, SUBCUTANEOUS
     Route: 058
     Dates: start: 20060123
  3. CIPROFLOXACIN [Suspect]
     Dosage: 250 MG,
     Dates: start: 19951201

REACTIONS (3)
  - EPILEPSY [None]
  - LEUKOPENIA [None]
  - STATUS EPILEPTICUS [None]
